FAERS Safety Report 24947196 (Version 1)
Quarter: 2025Q1

REPORT INFORMATION
  Report Type: Report from Study
  Country: US (occurrence: US)
  Receive Date: 20250210
  Receipt Date: 20250210
  Transmission Date: 20250409
  Serious: Yes (Other)
  Sender: Pyros Pharmaceuticals
  Company Number: US-PYROS PHARMACEUTICALS, INC-2025-PYROS-US000035

PATIENT
  Age: 0 Year
  Sex: Female
  Weight: 4.7 kg

DRUGS (5)
  1. VIGAFYDE [Suspect]
     Active Substance: VIGABATRIN
     Indication: Seizure
     Dosage: 250 MG (2.5 ML), BID
     Route: 048
     Dates: start: 20250124
  2. VIMPAT [Concomitant]
     Active Substance: LACOSAMIDE
     Indication: Seizure
     Dosage: 2.5 ML, BID
     Route: 065
  3. PHENOBARBITAL [Concomitant]
     Active Substance: PHENOBARBITAL
     Indication: Seizure
     Dosage: 4.5 ML, BID
     Route: 065
  4. ORAPRED [Concomitant]
     Active Substance: PREDNISOLONE SODIUM PHOSPHATE
     Indication: Product used for unknown indication
     Dosage: 4 ML, TID
     Route: 065
  5. VITAMIN D [Concomitant]
     Active Substance: VITAMIN D NOS
     Indication: Product used for unknown indication
     Route: 065

REACTIONS (4)
  - Seizure [Recovered/Resolved]
  - Drug ineffective [Recovered/Resolved]
  - Involuntary vocalisation [Recovered/Resolved]
  - Somnolence [Not Recovered/Not Resolved]

NARRATIVE: CASE EVENT DATE: 20250125
